FAERS Safety Report 24576345 (Version 3)
Quarter: 2024Q4

REPORT INFORMATION
  Report Type: Report from Study
  Country: DE (occurrence: DE)
  Receive Date: 20241104
  Receipt Date: 20241213
  Transmission Date: 20250115
  Serious: No
  Sender: BAXTER
  Company Number: DE-BAXTER-2024BAX027027

PATIENT
  Age: 76 Year
  Sex: Male

DRUGS (7)
  1. AMINO ACIDS\DEXTROSE\ELECTROLYTES NOS\SOYBEAN OIL [Suspect]
     Active Substance: AMINO ACIDS\DEXTROSE\ELECTROLYTES NOS\SOYBEAN OIL
     Indication: Parenteral nutrition
     Dosage: 1435 ML AT AN UNSPECIFIED FREQUENCY ADMINISTERED VIA CENTRAL VENOUS ROUTE
     Route: 042
     Dates: start: 20220602
  2. AMINO ACIDS\DEXTROSE\ELECTROLYTES NOS\SOYBEAN OIL [Suspect]
     Active Substance: AMINO ACIDS\DEXTROSE\ELECTROLYTES NOS\SOYBEAN OIL
     Dosage: 1435 ML AT AN UNSPECIFIED FREQUENCY ADMINISTERED VIA CENTRAL VENOUS ROUTE
     Route: 042
     Dates: start: 20241203
  3. CERNEVIT [Suspect]
     Active Substance: VITAMINS
     Indication: Parenteral nutrition
     Dosage: 750 MG AT AN UNSPECIFIED FREQUENCY ADMINISTERED VIA CENTRAL VENOUS ROUTE
     Route: 042
     Dates: start: 20220602
  4. CERNEVIT [Suspect]
     Active Substance: VITAMINS
     Dosage: 750 MG AT AN UNSPECIFIED FREQUENCY ADMINISTERED VIA CENTRAL VENOUS ROUTE
     Route: 042
     Dates: start: 20241203
  5. ELECTROLYTES NOS\MINERALS [Suspect]
     Active Substance: ELECTROLYTES NOS\MINERALS
     Indication: Parenteral nutrition
     Dosage: (MANUFACTURER: LABORATOIRE AGUETTANT S.A.S.) 10 ML AT AN UNSPECIFIED FREQUENCY ADMINISTERED VIA CENT
     Route: 042
     Dates: start: 20220602
  6. ELECTROLYTES NOS\MINERALS [Suspect]
     Active Substance: ELECTROLYTES NOS\MINERALS
     Dosage: (MANUFACTURER: LABORATOIRE AGUETTANT S.A.S.) 10 ML AT AN UNSPECIFIED FREQUENCY ADMINISTERED VIA CENT
     Route: 042
     Dates: start: 20241203
  7. UNSPECIFIED INGREDIENT [Suspect]
     Active Substance: UNSPECIFIED INGREDIENT
     Route: 065

REACTIONS (2)
  - Spinal stenosis [Not Recovered/Not Resolved]
  - Back pain [Recovered/Resolved]

NARRATIVE: CASE EVENT DATE: 20241028
